FAERS Safety Report 7181713-8 (Version None)
Quarter: 2010Q4

REPORT INFORMATION
  Report Type: 
  Country: None (occurrence: None)
  Receive Date: 20101221
  Receipt Date: 20100429
  Transmission Date: 20110411
  Serious: No
  Sender: FDA-Public Use
  Company Number: US-AMGEN-KDL409308

PATIENT

DRUGS (5)
  1. ENBREL [Suspect]
     Indication: PSORIASIS
     Dosage: 50 MG, 2 TIMES/WK
     Dates: start: 20090305
  2. ATORVASTATIN CALCIUM [Concomitant]
     Dosage: UNK UNK, UNK
  3. CLOPIDOGREL BISULFATE [Concomitant]
     Dosage: UNK UNK, UNK
  4. TOPROL-XL [Concomitant]
     Dosage: UNK UNK, UNK
  5. ACETYLSALICYLIC ACID [Concomitant]
     Dosage: UNK UNK, UNK

REACTIONS (1)
  - TINNITUS [None]
